FAERS Safety Report 7117924-7 (Version None)
Quarter: 2010Q4

REPORT INFORMATION
  Report Type: 
  Country: None (occurrence: None)
  Receive Date: 20101123
  Receipt Date: 20101109
  Transmission Date: 20110411
  Serious: Yes (Disabling, Other)
  Sender: FDA-Public Use
  Company Number: GB-RANBAXY-2006RR-03523

PATIENT
  Age: 71 Year
  Sex: Male

DRUGS (8)
  1. SIMVASTATIN [Suspect]
     Indication: HYPERCHOLESTEROLAEMIA
     Dosage: 10 MG, QD
     Route: 048
     Dates: start: 20020210, end: 20030121
  2. SIMVASTATIN [Suspect]
     Dosage: 10 MG, QD
     Route: 048
     Dates: start: 20031212, end: 20060322
  3. ACETAMINOPHEN [Concomitant]
     Dosage: 1 DF, QID
     Route: 048
     Dates: start: 20021015, end: 20060111
  4. ASPIRIN [Concomitant]
     Indication: TRANSIENT ISCHAEMIC ATTACK
     Dosage: 75 MG, QD
     Route: 048
     Dates: start: 20050715
  5. ASPIRIN [Concomitant]
     Indication: TRANSIENT GLOBAL AMNESIA
  6. DOTHIEPIN HYDROCHLORIDE [Concomitant]
     Dosage: UNK
     Route: 048
     Dates: start: 20050314, end: 20060111
  7. ACETAMINOPHEN W/ PROPOXYPHENE HCL [Concomitant]
     Dosage: 4 DF, QD
     Route: 048
     Dates: start: 20021015, end: 20060111
  8. ACETAMINOPHEN WITH PROPOXYPHENE HCL TAB [Concomitant]

REACTIONS (3)
  - ALOPECIA [None]
  - ERECTILE DYSFUNCTION [None]
  - TRANSIENT GLOBAL AMNESIA [None]
